FAERS Safety Report 7956945-9 (Version None)
Quarter: 2011Q4

REPORT INFORMATION
  Report Type: 
  Country: None (occurrence: None)
  Receive Date: 20111205
  Receipt Date: 20111205
  Transmission Date: 20120403
  Serious: Yes (Hospitalization)
  Sender: FDA-Public Use
  Company Number: None

PATIENT
  Age: 61 Year
  Sex: Male

DRUGS (16)
  1. HEPARIN [Suspect]
     Indication: ACUTE MYOCARDIAL INFARCTION
     Dosage: 13.8 UNITS/KG
     Route: 041
     Dates: start: 20110803, end: 20110805
  2. HEPARIN [Suspect]
     Indication: THROMBOSIS PROPHYLAXIS
     Dosage: 13.8 UNITS/KG
     Route: 041
     Dates: start: 20110803, end: 20110805
  3. METRONIDAZOLE [Concomitant]
  4. PANTOPRAZOLE [Concomitant]
  5. ALBUTEROL SULFATE AND IPRATROPIUM BROMIDE [Concomitant]
  6. ASPIRIN [Concomitant]
     Indication: ACUTE MYOCARDIAL INFARCTION
     Dosage: 81 MG
     Route: 048
     Dates: start: 20110804, end: 20110807
  7. HYDROCORTISONE CREAM [Concomitant]
  8. CEFTRIAXONE [Concomitant]
  9. OXYCODONE HCL AND ACETAMINOPHEN [Concomitant]
  10. LIDOCAINE [Concomitant]
  11. MAGNESIUM SULFATE [Concomitant]
  12. METOPROLOL [Concomitant]
  13. PIPERACILLIN AND TAZOBACTAM [Concomitant]
  14. SODIUM FERRIC GLUCONATE [Concomitant]
  15. INSULIN ASPART [Concomitant]
  16. DIPHENHYDRAMINE HCL [Concomitant]

REACTIONS (5)
  - GASTROINTESTINAL HAEMORRHAGE [None]
  - HAEMODIALYSIS [None]
  - ACTIVATED PARTIAL THROMBOPLASTIN TIME SHORTENED [None]
  - ACUTE MYOCARDIAL INFARCTION [None]
  - HAEMOGLOBIN DECREASED [None]
